FAERS Safety Report 25367128 (Version 2)
Quarter: 2025Q2

REPORT INFORMATION
  Report Type: Report from Study
  Country: CA (occurrence: CA)
  Receive Date: 20250528
  Receipt Date: 20250611
  Transmission Date: 20250716
  Serious: Yes (Hospitalization)
  Sender: SAMSUNG BIOEPIS
  Company Number: CA-SAMSUNG BIOEPIS-SB-2025-18617

PATIENT
  Age: 16 Year
  Sex: Male
  Weight: 72 kg

DRUGS (4)
  1. RENFLEXIS [Suspect]
     Active Substance: INFLIXIMAB-ABDA
     Indication: Crohn^s disease
     Route: 042
     Dates: start: 20231204
  2. RENFLEXIS [Suspect]
     Active Substance: INFLIXIMAB-ABDA
     Indication: Anaemia
     Dosage: DOSE INCREASED;
     Route: 042
     Dates: start: 20250603
  3. PANTOPRAZOLE [Concomitant]
     Active Substance: PANTOPRAZOLE
     Indication: Product used for unknown indication
  4. VITAMIN D [Concomitant]
     Active Substance: VITAMIN D NOS
     Indication: Product used for unknown indication

REACTIONS (6)
  - Anal abscess [Recovered/Resolved]
  - Abdominal pain [Unknown]
  - Pyrexia [Unknown]
  - Pelvic mass [Unknown]
  - Drug ineffective [Unknown]
  - Off label use [Unknown]
